FAERS Safety Report 8933836 (Version 1)
Quarter: 2012Q4

REPORT INFORMATION
  Report Type: 
  Country: US (occurrence: US)
  Receive Date: 20121129
  Receipt Date: 20121129
  Transmission Date: 20130627
  Serious: Yes (Other)
  Sender: FDA-Public Use
  Company Number: US-BAYER-2012-117124

PATIENT

DRUGS (2)
  1. ALEVE CAPLET/TABLET,MIDOL EXTENDED RELIEF CAPLET [Suspect]
     Indication: TOOTHACHE
  2. ADVIL [Suspect]

REACTIONS (5)
  - Haemorrhage [None]
  - Nail discolouration [None]
  - Nasopharyngitis [None]
  - Pyrexia [None]
  - Tremor [None]
